FAERS Safety Report 11331464 (Version 1)
Quarter: 2015Q3

REPORT INFORMATION
  Report Type: Spontaneous
  Country: US (occurrence: US)
  Receive Date: 20150803
  Receipt Date: 20150803
  Transmission Date: 20151125
  Serious: No
  Sender: FDA-Public Use
  Company Number: US-ELI_LILLY_AND_COMPANY-US201507011211

PATIENT
  Age: 22 Month
  Sex: Male
  Weight: 11.79 kg

DRUGS (2)
  1. HUMALOG [Suspect]
     Active Substance: INSULIN LISPRO
     Indication: TYPE 1 DIABETES MELLITUS
     Dosage: .5 U, QD
     Route: 065
     Dates: start: 201503, end: 201506
  2. LANTUS [Concomitant]
     Active Substance: INSULIN GLARGINE
     Route: 065

REACTIONS (3)
  - Drug effect increased [Unknown]
  - Blood glucose decreased [Recovering/Resolving]
  - Food allergy [Unknown]
